FAERS Safety Report 10404505 (Version 1)
Quarter: 2014Q2

REPORT INFORMATION
  Report Type: Spontaneous
  Country: US (occurrence: None)
  Receive Date: 20140514
  Receipt Date: 20140514
  Transmission Date: 20141212
  Serious: Yes (Other)
  Sender: FDA-Public Use
  Company Number: 096724

PATIENT
  Sex: 0

DRUGS (2)
  1. CIMZIA [Suspect]
     Indication: CROHN^S DISEASE
     Dosage: (UNKNOWN DOSE)?(TO UNKNOWN)
  2. HUMIRA [Concomitant]

REACTIONS (2)
  - Surgery [None]
  - Drug ineffective [None]
